FAERS Safety Report 10539696 (Version 4)
Quarter: 2016Q2

REPORT INFORMATION
  Report Type: Spontaneous
  Country: US (occurrence: US)
  Receive Date: 20141024
  Receipt Date: 20160525
  Transmission Date: 20160815
  Serious: Yes (Hospitalization, Other)
  Sender: FDA-Public Use
  Company Number: US-AMGEN-USASP2014080476

PATIENT
  Age: 61 Year
  Sex: Female
  Weight: 61 kg

DRUGS (6)
  1. OXYCODONE [Concomitant]
     Active Substance: OXYCODONE
     Dosage: 10 MG, FOUR TIMES A DAY
  2. METOLAZONE. [Concomitant]
     Active Substance: METOLAZONE
     Dosage: 800 MG, TID
  3. SENSIPAR [Suspect]
     Active Substance: CINACALCET HYDROCHLORIDE
     Indication: BLOOD PARATHYROID HORMONE INCREASED
     Dosage: UNK
     Route: 065
  4. PROLIA [Suspect]
     Active Substance: DENOSUMAB
     Indication: PRODUCT USED FOR UNKNOWN INDICATION
     Dosage: UNK
     Route: 065
     Dates: start: 20140724
  5. URSODIOL. [Concomitant]
     Active Substance: URSODIOL
     Dosage: 250 MG, THREE TO FOUR TIMES PER DAY
  6. IBUPROFEN. [Concomitant]
     Active Substance: IBUPROFEN

REACTIONS (17)
  - Feeding disorder [Unknown]
  - Dizziness [Unknown]
  - Tinnitus [Unknown]
  - Burning sensation [Unknown]
  - Lethargy [Unknown]
  - Anxiety [Unknown]
  - Vision blurred [Unknown]
  - Mobility decreased [Unknown]
  - Visual impairment [Unknown]
  - Blood parathyroid hormone abnormal [Unknown]
  - Depressed mood [Not Recovered/Not Resolved]
  - Pain [Not Recovered/Not Resolved]
  - Feeling hot [Unknown]
  - Artificial crown procedure [Unknown]
  - Insomnia [Unknown]
  - Bone pain [Not Recovered/Not Resolved]
  - Weight bearing difficulty [Unknown]

NARRATIVE: CASE EVENT DATE: 2014
